FAERS Safety Report 5752466-2 (Version None)
Quarter: 2008Q2

REPORT INFORMATION
  Report Type: 
  Country: None (occurrence: None)
  Receive Date: 20080529
  Receipt Date: 20080428
  Transmission Date: 20081010
  Serious: No
  Sender: FDA-Public Use
  Company Number: US-BAYER-200714275BCC

PATIENT
  Age: 94 Year
  Sex: Female
  Weight: 59 kg

DRUGS (3)
  1. ALEVE (CAPLET) [Suspect]
     Indication: ARTHRALGIA
     Dosage: TOTAL DAILY DOSE: 220 MG  UNIT DOSE: 220 MG
     Route: 048
     Dates: start: 20070901
  2. PROPRANOLOL [Concomitant]
  3. ISOSORBIDE DINITRATE [Concomitant]

REACTIONS (1)
  - FAECES DISCOLOURED [None]
